FAERS Safety Report 4277505-X (Version None)
Quarter: 2004Q1

REPORT INFORMATION
  Report Type: 
  Country: None (occurrence: None)
  Receive Date: 20040122
  Receipt Date: 20040113
  Transmission Date: 20041129
  Serious: Yes (Other)
  Sender: FDA-Public Use
  Company Number: PHNU2004DE00520

PATIENT
  Age: 0 None
  Sex: Female

DRUGS (1)
  1. SYNTOCINON [Suspect]
     Indication: INDUCED LABOUR
     Route: 065
     Dates: start: 19980101, end: 19980101

REACTIONS (6)
  - ARRESTED LABOUR [None]
  - COMPLICATION OF DELIVERY [None]
  - DRUG EXPOSURE DURING PREGNANCY [None]
  - LARGE FOR DATES BABY [None]
  - NORMAL NEWBORN [None]
  - VACUUM EXTRACTOR DELIVERY [None]
